FAERS Safety Report 20342321 (Version 2)
Quarter: 2023Q1

REPORT INFORMATION
  Report Type: Other
  Country: US (occurrence: None)
  Receive Date: 20220117
  Receipt Date: 20230320
  Transmission Date: 20230418
  Serious: Yes (Other)
  Sender: FDA-Public Use
  Company Number: US-ROCHE-2999255

PATIENT

DRUGS (1)
  1. OCRELIZUMAB [Suspect]
     Active Substance: OCRELIZUMAB
     Indication: Multiple sclerosis
     Route: 065

REACTIONS (8)
  - Peritonitis [Not Recovered/Not Resolved]
  - Bacterial vaginosis [Recovered/Resolved]
  - Fungal infection [Recovered/Resolved]
  - COVID-19 [Recovered/Resolved with Sequelae]
  - Herpes virus infection [Recovered/Resolved]
  - Dyspnoea [Recovered/Resolved]
  - Nasopharyngitis [Recovered/Resolved]
  - Epiploic appendagitis [Not Recovered/Not Resolved]
